FAERS Safety Report 19927060 (Version 1)
Quarter: 2021Q4

REPORT INFORMATION
  Report Type: Spontaneous
  Country: US (occurrence: US)
  Receive Date: 20211007
  Receipt Date: 20211007
  Transmission Date: 20220303
  Serious: No
  Sender: FDA-Public Use
  Company Number: US-TERSERA THERAPEUTICS LLC-2020TRS002874

PATIENT

DRUGS (2)
  1. VARUBI [Suspect]
     Active Substance: ROLAPITANT
     Indication: Non-Hodgkin^s lymphoma
     Dosage: 90 MG, 2 IN 4 WK
     Route: 048
     Dates: start: 20200828
  2. IMBRUVICA [Suspect]
     Active Substance: IBRUTINIB
     Indication: Non-Hodgkin^s lymphoma
     Dosage: 560 MG, 1 IN 1 D
     Route: 048
     Dates: start: 20200828

REACTIONS (7)
  - Transfusion [Unknown]
  - Blood potassium decreased [Unknown]
  - Exercise tolerance decreased [Recovering/Resolving]
  - Dehydration [Unknown]
  - Diarrhoea [Recovered/Resolved]
  - Fatigue [Unknown]
  - Pyrexia [Unknown]

NARRATIVE: CASE EVENT DATE: 20200101
